FAERS Safety Report 8492346-5 (Version None)
Quarter: 2012Q3

REPORT INFORMATION
  Report Type: 
  Country: None (occurrence: None)
  Receive Date: 20120706
  Receipt Date: 20120625
  Transmission Date: 20120928
  Serious: Yes (Hospitalization)
  Sender: FDA-Public Use
  Company Number: DE-TEVA-345684GER

PATIENT
  Age: 70 Year
  Sex: Male

DRUGS (2)
  1. CARBIDOPA AND LEVODOPA [Suspect]
     Indication: PARKINSON'S DISEASE
     Dosage: PUMP RATE 5.4 ML/HOUR + MORNING DOSE OF 10ML AND EXTRA DOSES OF 3ML AS NEEDED; SWITCHED OFF AT NIGHT
  2. CARBIDOPA AND LEVODOPA [Suspect]

REACTIONS (4)
  - THERAPEUTIC RESPONSE DECREASED [None]
  - BEZOAR [None]
  - PICA [None]
  - TRICHOTILLOMANIA [None]
